FAERS Safety Report 5615735-2 (Version None)
Quarter: 2008Q1

REPORT INFORMATION
  Report Type: 
  Country: None (occurrence: None)
  Receive Date: 20080201
  Receipt Date: 20080122
  Transmission Date: 20080703
  Serious: Yes (Other)
  Sender: FDA-Public Use
  Company Number: 2008US000313

PATIENT
  Age: 41 Year
  Sex: Female

DRUGS (3)
  1. PROGRAF [Suspect]
     Indication: RENAL TRANSPLANT
  2. ATG (ANTITHYMOCYTE IMMUNOGLOBULIN (RABBIT)) [Concomitant]
  3. MYCOPHENOLATE MOFETIL [Concomitant]

REACTIONS (3)
  - BLOOD CREATININE INCREASED [None]
  - HAEMORRHAGE [None]
  - TRANSPLANT REJECTION [None]
